FAERS Safety Report 7081204-9 (Version None)
Quarter: 2010Q4

REPORT INFORMATION
  Report Type: 
  Country: None (occurrence: None)
  Receive Date: 20101103
  Receipt Date: 20101026
  Transmission Date: 20110411
  Serious: Yes (Death)
  Sender: FDA-Public Use
  Company Number: DE-ROCHE-737067

PATIENT
  Sex: Female

DRUGS (1)
  1. CAPECITABINE [Suspect]
     Dosage: RECEIVED 29 THREE WEEK CYCLES
     Route: 065
     Dates: start: 20070719, end: 20090316

REACTIONS (1)
  - MALIGNANT NEOPLASM PROGRESSION [None]
